FAERS Safety Report 7155754-0 (Version None)
Quarter: 2010Q4

REPORT INFORMATION
  Report Type: 
  Country: None (occurrence: None)
  Receive Date: 20101123
  Receipt Date: 20101008
  Transmission Date: 20110411
  Serious: No
  Sender: FDA-Public Use
  Company Number: 005311

PATIENT
  Sex: Male

DRUGS (3)
  1. CIMZIA [Suspect]
     Indication: CROHN'S DISEASE
     Dosage: 400 MG1X/4 WEEKS SUBCUTANEOUS, 400 MG 1X4 WEEKS SUBCUTANEOUS
     Route: 058
     Dates: start: 20090513
  2. CIMZIA [Suspect]
     Indication: CROHN'S DISEASE
     Dosage: 400 MG1X/4 WEEKS SUBCUTANEOUS, 400 MG 1X4 WEEKS SUBCUTANEOUS
     Route: 058
     Dates: start: 20090513
  3. CIMZIA [Suspect]

REACTIONS (5)
  - ACROCHORDON [None]
  - ECZEMA [None]
  - RASH [None]
  - RASH ERYTHEMATOUS [None]
  - RASH PRURITIC [None]
